FAERS Safety Report 6363982-7 (Version None)
Quarter: 2009Q3

REPORT INFORMATION
  Report Type: 
  Country: None (occurrence: None)
  Receive Date: 20090919
  Receipt Date: 20090710
  Transmission Date: 20100115
  Serious: No
  Sender: FDA-Public Use
  Company Number: US-ABBOTT-09P-163-0585089-00

PATIENT
  Sex: Female
  Weight: 40.86 kg

DRUGS (5)
  1. HUMIRA [Suspect]
     Indication: CROHN'S DISEASE
     Dates: start: 20090501, end: 20090501
  2. HUMIRA [Suspect]
     Dates: start: 20090501, end: 20090501
  3. HUMIRA [Suspect]
     Dates: start: 20090601
  4. LEVSIN [Concomitant]
     Indication: CROHN'S DISEASE
  5. ASOCOL [Concomitant]
     Indication: CROHN'S DISEASE

REACTIONS (3)
  - ALOPECIA [None]
  - DRUG DOSE OMISSION [None]
  - WEIGHT INCREASED [None]
